FAERS Safety Report 9087349 (Version 1)
Quarter: 2013Q1

REPORT INFORMATION
  Report Type: Report from Study
  Country: US (occurrence: US)
  Receive Date: 20130201
  Receipt Date: 20130201
  Transmission Date: 20140127
  Serious: No
  Sender: FDA-Public Use
  Company Number: US-ABBOTT-12P-163-1029380-00

PATIENT
  Age: 50 Year
  Sex: Female
  Weight: 60.84 kg

DRUGS (3)
  1. HUMIRA [Suspect]
     Indication: RHEUMATOID ARTHRITIS
     Route: 058
     Dates: start: 201211
  2. JANUMET [Concomitant]
     Indication: DIABETES MELLITUS
  3. GLIMEPIRIDE [Concomitant]
     Indication: DIABETES MELLITUS

REACTIONS (4)
  - Pyrexia [Recovered/Resolved]
  - Pain [Recovered/Resolved]
  - Hyperhidrosis [Recovered/Resolved]
  - Influenza [Recovered/Resolved]
